FAERS Safety Report 12648923 (Version 1)
Quarter: 2016Q3

REPORT INFORMATION
  Report Type: Spontaneous
  Country: US (occurrence: US)
  Receive Date: 20160812
  Receipt Date: 20160812
  Transmission Date: 20161109
  Serious: No
  Sender: FDA-Public Use
  Company Number: US-PFIZER INC-2016378281

PATIENT
  Age: 40 Year
  Sex: Female

DRUGS (3)
  1. AMRIX [Suspect]
     Active Substance: CYCLOBENZAPRINE HYDROCHLORIDE
     Dosage: 15 MG, DAILY
  2. GABAPENTIN. [Suspect]
     Active Substance: GABAPENTIN
     Dosage: MORE THAN THE 1200MG PER DAY
  3. GABAPENTIN. [Suspect]
     Active Substance: GABAPENTIN
     Dosage: 1200 MG, DAILY (300MG CAPSULES 1 IN THE MORNING AND 3 AT BEDTIME)

REACTIONS (2)
  - Confusional state [Unknown]
  - Sedation [Unknown]
